FAERS Safety Report 21698618 (Version 1)
Quarter: 2022Q4

REPORT INFORMATION
  Report Type: Other
  Country: US (occurrence: None)
  Receive Date: 20221208
  Receipt Date: 20221208
  Transmission Date: 20230112
  Serious: No
  Sender: FDA-Public Use
  Company Number: US-Orion Corporation ORION PHARMA-ENTC2012-0292

PATIENT
  Age: 64 Year
  Sex: Male

DRUGS (4)
  1. CARBIDOPA\ENTACAPONE\LEVODOPA [Suspect]
     Active Substance: CARBIDOPA\ENTACAPONE\LEVODOPA
     Indication: Parkinson^s disease
     Dosage: 125/31.25/200 MG EVERY 4 HOURS Q4H (AT 6 AM, 10 AM, 2 PM, AND 6 PM)
     Route: 065
  2. CARBIDOPA\ENTACAPONE\LEVODOPA [Suspect]
     Active Substance: CARBIDOPA\ENTACAPONE\LEVODOPA
     Dosage: 125/31.25/200 MG EVERY 3 HOURS Q3H
     Route: 065
  3. CARBIDOPA\LEVODOPA [Suspect]
     Active Substance: CARBIDOPA\LEVODOPA
     Indication: Parkinson^s disease
     Dosage: 25/100 MG AT TWICE DAILY  (10 PM AND 2 AM)
     Route: 065
  4. PRAMIPEXOLE [Suspect]
     Active Substance: PRAMIPEXOLE
     Indication: Parkinson^s disease
     Dosage: 1 MG WITH EACH DOSE OF LEVODOPA-CARBIDOPA-ENTACAPONE
     Route: 065

REACTIONS (10)
  - Fine motor delay [Unknown]
  - Gross motor delay [Unknown]
  - Gait disturbance [Unknown]
  - Freezing phenomenon [Unknown]
  - Tremor [Unknown]
  - Dysphonia [Unknown]
  - Anxiety [Unknown]
  - Muscle rigidity [Unknown]
  - Bradykinesia [Unknown]
  - Dyskinesia [Recovered/Resolved]
